FAERS Safety Report 8560620-X (Version None)
Quarter: 2012Q3

REPORT INFORMATION
  Report Type: 
  Country: None (occurrence: None)
  Receive Date: 20120727
  Receipt Date: 20120727
  Transmission Date: 20120928
  Serious: Yes (Hospitalization)
  Sender: FDA-Public Use
  Company Number: None

PATIENT
  Age: 91 Year
  Sex: Female
  Weight: 58.5 kg

DRUGS (13)
  1. ARTHROTEC [Suspect]
     Dosage: 50-200MG DAILY PO CHRONIC
     Route: 048
  2. VIT C [Concomitant]
  3. OXYBUTYNIN CHLORIDE [Concomitant]
  4. ALLEGRA [Concomitant]
  5. HYDROCHLOROTHIAZIDE [Concomitant]
  6. AMIODARONE HCL [Suspect]
     Indication: ATRIAL FIBRILLATION
     Dosage: 200 MG DAILY PO CHRONIC
     Route: 048
  7. FUROSEMIDE [Concomitant]
  8. PRILOSEC [Concomitant]
  9. M.V.I. [Concomitant]
  10. DOXAZOSIN MESYLATE [Concomitant]
  11. DIAZEPAM [Concomitant]
  12. WARFARIN SODIUM [Suspect]
     Indication: ATRIAL FIBRILLATION
     Dosage: 2 MG / 3 MG EOD ALT PO RECENTLY RESTARTED
     Route: 048
  13. VIT+D3 [Concomitant]

REACTIONS (7)
  - ODYNOPHAGIA [None]
  - INTERNATIONAL NORMALISED RATIO INCREASED [None]
  - MELAENA [None]
  - HYPOPHAGIA [None]
  - THROMBOCYTOPENIA [None]
  - RENAL FAILURE ACUTE [None]
  - ANAEMIA [None]
